FAERS Safety Report 12565842 (Version 1)
Quarter: 2016Q3

REPORT INFORMATION
  Report Type: Spontaneous
  Country: US (occurrence: US)
  Receive Date: 20160718
  Receipt Date: 20160718
  Transmission Date: 20161109
  Serious: No
  Sender: FDA-Public Use
  Company Number: US-BEH-2016071180

PATIENT
  Sex: Female
  Weight: 69.39 kg

DRUGS (24)
  1. SODIUM CHLORIDE. [Concomitant]
     Active Substance: SODIUM CHLORIDE
  2. EPIPEN [Concomitant]
     Active Substance: EPINEPHRINE
  3. CENTRUM SILVER                     /02363801/ [Concomitant]
     Active Substance: MINERALS\VITAMINS
  4. FORTEO [Concomitant]
     Active Substance: TERIPARATIDE
  5. SYNTHROID [Concomitant]
     Active Substance: LEVOTHYROXINE SODIUM
  6. SPIRIVA [Concomitant]
     Active Substance: TIOTROPIUM BROMIDE MONOHYDRATE
  7. COLACE [Concomitant]
     Active Substance: DOCUSATE SODIUM
  8. ZEMAIRA [Suspect]
     Active Substance: .ALPHA.1-PROTEINASE INHIBITOR HUMAN
     Indication: ALPHA-1 ANTI-TRYPSIN DEFICIENCY
     Dosage: 60 MG, QW
     Route: 042
     Dates: start: 20100422
  9. LEXAPRO [Concomitant]
     Active Substance: ESCITALOPRAM OXALATE
  10. OXYGEN. [Concomitant]
     Active Substance: OXYGEN
  11. CLARITIN [Concomitant]
     Active Substance: LORATADINE
  12. NORMAL SALINE [Concomitant]
     Active Substance: SODIUM CHLORIDE
  13. XOPENEX [Concomitant]
     Active Substance: LEVALBUTEROL HYDROCHLORIDE
  14. AMBIEN [Concomitant]
     Active Substance: ZOLPIDEM TARTRATE
  15. TYLENOL [Concomitant]
     Active Substance: ACETAMINOPHEN
  16. LMX                                /00033401/ [Concomitant]
  17. FLUOROMETHOLONE. [Concomitant]
     Active Substance: FLUOROMETHOLONE
  18. LEVALBUTEROL. [Concomitant]
     Active Substance: LEVALBUTEROL
  19. MAXAIR                             /00587603/ [Concomitant]
  20. DIPHENHYDRAMINE. [Concomitant]
     Active Substance: DIPHENHYDRAMINE
  21. SYMBICORT [Concomitant]
     Active Substance: BUDESONIDE\FORMOTEROL FUMARATE DIHYDRATE
  22. CYTOMEL [Concomitant]
     Active Substance: LIOTHYRONINE SODIUM
  23. ZOFRAN [Concomitant]
     Active Substance: ONDANSETRON HYDROCHLORIDE
  24. IBUPROFEN                          /00109205/ [Concomitant]
     Active Substance: IBUPROFEN

REACTIONS (5)
  - Dyspnoea [Unknown]
  - Respiratory tract congestion [Unknown]
  - Pyrexia [Unknown]
  - Bronchitis [Unknown]
  - Productive cough [Unknown]
